FAERS Safety Report 5444364-9 (Version None)
Quarter: 2007Q3

REPORT INFORMATION
  Report Type: 
  Country: None (occurrence: None)
  Receive Date: 20070904
  Receipt Date: 20070904
  Transmission Date: 20080115
  Serious: Yes (Death)
  Sender: FDA-Public Use
  Company Number: None

PATIENT
  Age: 68 Year
  Sex: Female
  Weight: 86.1834 kg

DRUGS (7)
  1. LISINOPRIL [Suspect]
     Indication: HYPERTENSION
     Dosage: 40 MG DAILY OROPHARINGE
     Route: 049
  2. LISINOPRIL [Suspect]
     Indication: TYPE 2 DIABETES MELLITUS
     Dosage: 40 MG DAILY OROPHARINGE
     Route: 049
  3. NORVASC [Concomitant]
  4. GLYBURIDE [Concomitant]
  5. LEVOTHYROXINE SODIUM [Concomitant]
  6. AVANDIA [Concomitant]
  7. SIMVASTATIN [Concomitant]

REACTIONS (6)
  - HYPOTONIA [None]
  - OEDEMA [None]
  - RESPIRATORY DISORDER [None]
  - RESPIRATORY DISTRESS [None]
  - TONGUE OEDEMA [None]
  - UNRESPONSIVE TO STIMULI [None]
